FAERS Safety Report 16947456 (Version 1)
Quarter: 2019Q4

REPORT INFORMATION
  Report Type: Spontaneous
  Country: MX (occurrence: MX)
  Receive Date: 20191022
  Receipt Date: 20191022
  Transmission Date: 20200122
  Serious: Yes (Other)
  Sender: FDA-Public Use
  Company Number: MX-009507513-1910MEX012781

PATIENT
  Sex: Female

DRUGS (1)
  1. DAPTOMYCIN. [Suspect]
     Active Substance: DAPTOMYCIN
     Indication: CELLULITIS

REACTIONS (4)
  - Drug effective for unapproved indication [Unknown]
  - Leukopenia [Unknown]
  - Therapeutic product effect incomplete [Unknown]
  - Off label use [Unknown]
